FAERS Safety Report 21821753 (Version 1)
Quarter: 2023Q1

REPORT INFORMATION
  Report Type: Spontaneous
  Country: US (occurrence: None)
  Receive Date: 20230105
  Receipt Date: 20230105
  Transmission Date: 20230418
  Serious: Yes (Other)
  Sender: FDA-Public Use
  Company Number: US-ROCHE-3256310

PATIENT
  Age: 59 Year
  Sex: Male

DRUGS (3)
  1. OCREVUS [Suspect]
     Active Substance: OCRELIZUMAB
     Indication: Relapsing-remitting multiple sclerosis
     Dosage: PATIENT STATES HE BEGAN IT EITHER 2019 OR 2020 ;ONGOING: UNKNOWN
     Route: 042
  2. ALPRAZOLAM [Concomitant]
     Active Substance: ALPRAZOLAM
     Dosage: PATIENT STATES THE DOSE VARIES FROM 0.5MG-1 MG DEPENDING ON HOW HE?FEELS, + HE TAKES IT AT NIGHT
     Route: 048
  3. ADDERALL XR [Concomitant]
     Active Substance: AMPHETAMINE ASPARTATE\AMPHETAMINE SULFATE\DEXTROAMPHETAMINE SACCHARATE\DEXTROAMPHETAMINE SULFATE
     Dosage: PATIENT STATES HE TAKES IT IN THE MORNING
     Route: 048

REACTIONS (1)
  - Thyroid cancer [Not Recovered/Not Resolved]

NARRATIVE: CASE EVENT DATE: 20230103
